FAERS Safety Report 25465618 (Version 1)
Quarter: 2025Q2

REPORT INFORMATION
  Report Type: Spontaneous
  Country: US (occurrence: US)
  Receive Date: 20250623
  Receipt Date: 20250623
  Transmission Date: 20250717
  Serious: Yes (Hospitalization, Other)
  Sender: BAXTER
  Company Number: US-BAXTER-2025BAX016893

PATIENT
  Age: 66 Year
  Sex: Male
  Weight: 76.1 kg

DRUGS (8)
  1. VANCOMYCIN [Suspect]
     Active Substance: VANCOMYCIN
     Indication: Pyelonephritis
     Route: 042
     Dates: start: 202502
  2. NALOXONE [Suspect]
     Active Substance: NALOXONE
     Route: 065
  3. JAKAFI [Suspect]
     Active Substance: RUXOLITINIB
     Indication: Myelofibrosis
     Dosage: 15 MG, BID
     Route: 048
     Dates: start: 2023, end: 20250202
  4. PIPERACILLIN SODIUM\TAZOBACTAM SODIUM [Concomitant]
     Active Substance: PIPERACILLIN SODIUM\TAZOBACTAM SODIUM
     Indication: Pyelonephritis
     Route: 042
     Dates: start: 202502
  5. ALLOPURINOL [Concomitant]
     Active Substance: ALLOPURINOL
     Route: 065
  6. CYCLOBENZAPRINE [Concomitant]
     Active Substance: CYCLOBENZAPRINE
     Route: 065
  7. DICLOFENAC [Concomitant]
     Active Substance: DICLOFENAC
     Route: 065
  8. ROSUVASTATIN [Concomitant]
     Active Substance: ROSUVASTATIN
     Route: 065

REACTIONS (34)
  - Pyelonephritis [Unknown]
  - Blast cell count increased [Unknown]
  - Tremor [Recovered/Resolved]
  - Thirst [Unknown]
  - Palpitations [Unknown]
  - Back pain [Unknown]
  - Procalcitonin increased [Unknown]
  - Anion gap increased [Unknown]
  - Alpha 1 globulin abnormal [Unknown]
  - Basophil count increased [Unknown]
  - Blood albumin decreased [Unknown]
  - Blood alkaline phosphatase increased [Unknown]
  - Blood bilirubin increased [Unknown]
  - Blood calcium decreased [Unknown]
  - Blood chloride decreased [Unknown]
  - Blood glucose increased [Unknown]
  - Blood potassium decreased [Unknown]
  - Blood pressure abnormal [Unknown]
  - Blood sodium decreased [Unknown]
  - Drug level decreased [Unknown]
  - Immunoglobulins abnormal [Unknown]
  - Monocyte count increased [Unknown]
  - Protein total decreased [Unknown]
  - Troponin abnormal [Unknown]
  - Splenomegaly [Unknown]
  - Dyspnoea [Unknown]
  - Aspartate aminotransferase increased [Unknown]
  - Weight decreased [Unknown]
  - Epstein-Barr virus test positive [Unknown]
  - Vomiting [Recovering/Resolving]
  - Acute kidney injury [Unknown]
  - Chills [Unknown]
  - Pyrexia [Recovering/Resolving]
  - Nausea [Recovering/Resolving]

NARRATIVE: CASE EVENT DATE: 20250202
